FAERS Safety Report 21512738 (Version 1)
Quarter: 2022Q4

REPORT INFORMATION
  Report Type: Spontaneous
  Country: CN (occurrence: None)
  Receive Date: 20221027
  Receipt Date: 20221027
  Transmission Date: 20230113
  Serious: Yes (Other)
  Sender: FDA-Public Use
  Company Number: CN-ROCHE-3133837

PATIENT
  Age: 59 Year
  Sex: Male

DRUGS (34)
  1. GAZYVA [Suspect]
     Active Substance: OBINUTUZUMAB
     Indication: Diffuse large B-cell lymphoma
     Route: 065
     Dates: start: 20220421
  2. GAZYVA [Suspect]
     Active Substance: OBINUTUZUMAB
     Route: 065
     Dates: start: 20220616
  3. RITUXIMAB [Suspect]
     Active Substance: RITUXIMAB
     Indication: Diffuse large B-cell lymphoma
     Route: 065
     Dates: start: 20211128
  4. RITUXIMAB [Suspect]
     Active Substance: RITUXIMAB
     Route: 065
     Dates: start: 20220323
  5. CYCLOPHOSPHAMIDE [Concomitant]
     Active Substance: CYCLOPHOSPHAMIDE
     Indication: Diffuse large B-cell lymphoma
     Dosage: CHOPE
     Dates: start: 20211106
  6. CYCLOPHOSPHAMIDE [Concomitant]
     Active Substance: CYCLOPHOSPHAMIDE
     Dosage: R-CHOPE
     Dates: start: 20211128
  7. CYCLOPHOSPHAMIDE [Concomitant]
     Active Substance: CYCLOPHOSPHAMIDE
     Dates: start: 20220811
  8. DOXORUBICIN HYDROCHLORIDE [Concomitant]
     Active Substance: DOXORUBICIN HYDROCHLORIDE
     Indication: Diffuse large B-cell lymphoma
     Dosage: CHOPE
     Dates: start: 20211106
  9. DOXORUBICIN HYDROCHLORIDE [Concomitant]
     Active Substance: DOXORUBICIN HYDROCHLORIDE
     Dosage: R-CHOPE
     Dates: start: 20211128
  10. VINORELBINE [Concomitant]
     Active Substance: VINORELBINE TARTRATE
     Indication: Diffuse large B-cell lymphoma
     Dosage: CHOPE
     Dates: start: 20211106
  11. VINORELBINE [Concomitant]
     Active Substance: VINORELBINE TARTRATE
     Dosage: R-CHOPE
     Dates: start: 20211128
  12. DEXAMETHASONE [Concomitant]
     Active Substance: DEXAMETHASONE
     Dosage: CHOPE
     Dates: start: 20211106
  13. DEXAMETHASONE [Concomitant]
     Active Substance: DEXAMETHASONE
     Dosage: R-CHOPE
     Dates: start: 20211128
  14. ETOPOSIDE [Concomitant]
     Active Substance: ETOPOSIDE
     Indication: Diffuse large B-cell lymphoma
     Dosage: CHOPE
     Dates: start: 20211106
  15. ETOPOSIDE [Concomitant]
     Active Substance: ETOPOSIDE
     Dosage: R-CHOPE
     Dates: start: 20211128
  16. AZACITIDINE [Concomitant]
     Active Substance: AZACITIDINE
     Indication: Diffuse large B-cell lymphoma
     Dates: start: 20220323
  17. AZACITIDINE [Concomitant]
     Active Substance: AZACITIDINE
     Dates: start: 20220421
  18. AZACITIDINE [Concomitant]
     Active Substance: AZACITIDINE
     Dates: start: 20220811
  19. TUCIDINOSTAT [Concomitant]
     Active Substance: TUCIDINOSTAT
     Indication: Diffuse large B-cell lymphoma
     Dates: start: 20220323
  20. TUCIDINOSTAT [Concomitant]
     Active Substance: TUCIDINOSTAT
     Route: 048
     Dates: end: 20220415
  21. TUCIDINOSTAT [Concomitant]
     Active Substance: TUCIDINOSTAT
     Dates: start: 20220421
  22. GEMCITABINE [Concomitant]
     Active Substance: GEMCITABINE
     Indication: Diffuse large B-cell lymphoma
     Dates: start: 20220323
  23. GEMCITABINE [Concomitant]
     Active Substance: GEMCITABINE
     Dates: start: 20220421
  24. DEXAMETHASONE [Concomitant]
     Active Substance: DEXAMETHASONE
     Dates: start: 20220323
  25. DEXAMETHASONE [Concomitant]
     Active Substance: DEXAMETHASONE
     Dates: start: 20220421
  26. OXALIPLATIN [Concomitant]
     Active Substance: OXALIPLATIN
     Indication: Diffuse large B-cell lymphoma
     Dates: start: 20220323
  27. OXALIPLATIN [Concomitant]
     Active Substance: OXALIPLATIN
     Dates: start: 20220421
  28. VALACYCLOVIR [Concomitant]
     Active Substance: VALACYCLOVIR HYDROCHLORIDE
     Indication: Infection prophylaxis
  29. ENTECAVIR [Concomitant]
     Active Substance: ENTECAVIR
     Indication: Infection prophylaxis
  30. UNSPECIFIED INGREDIENT [Concomitant]
     Active Substance: UNSPECIFIED INGREDIENT
     Indication: Infection prophylaxis
  31. ORELABRUTINIB [Concomitant]
     Active Substance: ORELABRUTINIB
     Indication: Diffuse large B-cell lymphoma
     Dosage: 150MG PER DAY
     Route: 048
     Dates: start: 20220602
  32. ORELABRUTINIB [Concomitant]
     Active Substance: ORELABRUTINIB
     Route: 065
     Dates: start: 20220616
  33. LENALIDOMIDE [Concomitant]
     Active Substance: LENALIDOMIDE
     Indication: Diffuse large B-cell lymphoma
     Dates: start: 20220616
  34. FLUDARABINE [Concomitant]
     Active Substance: FLUDARABINE PHOSPHATE
     Indication: Diffuse large B-cell lymphoma
     Route: 065
     Dates: start: 20220811

REACTIONS (2)
  - Off label use [Unknown]
  - Myelosuppression [Unknown]
